FAERS Safety Report 6997179-4 (Version None)
Quarter: 2010Q3

REPORT INFORMATION
  Report Type: 
  Country: None (occurrence: None)
  Receive Date: 20100918
  Receipt Date: 20090917
  Transmission Date: 20110219
  Serious: No
  Sender: FDA-Public Use
  Company Number: US-WYE-H11062509

PATIENT
  Sex: Male
  Weight: 79.45 kg

DRUGS (1)
  1. PRISTIQ [Suspect]
     Indication: DEPRESSION
     Route: 048
     Dates: start: 20090301, end: 20090914

REACTIONS (4)
  - DRUG WITHDRAWAL SYNDROME [None]
  - EAR DISCOMFORT [None]
  - EUPHORIC MOOD [None]
  - TINNITUS [None]
